FAERS Safety Report 14443708 (Version 1)
Quarter: 2018Q1

REPORT INFORMATION
  Report Type: Report from Study
  Country: US (occurrence: US)
  Receive Date: 20180125
  Receipt Date: 20180125
  Transmission Date: 20180509
  Serious: No
  Sender: FDA-Public Use
  Company Number: US-AMGEN-USASL2017192513

PATIENT
  Age: 84 Year
  Sex: Male

DRUGS (1)
  1. KYPROLIS [Suspect]
     Active Substance: CARFILZOMIB
     Indication: PLASMA CELL MYELOMA
     Dosage: UNK, ONCE A WEEK FOR THREE WEEKS ON AND ONE WEEK OFF
     Route: 065

REACTIONS (6)
  - Pyrexia [Unknown]
  - Fall [Unknown]
  - Dysstasia [Unknown]
  - Chills [Unknown]
  - Asthenia [Unknown]
  - Off label use [Unknown]
